FAERS Safety Report 17331633 (Version 1)
Quarter: 2020Q1

REPORT INFORMATION
  Report Type: Spontaneous
  Country: US (occurrence: US)
  Receive Date: 20200111
  Receipt Date: 20200111
  Transmission Date: 20200409
  Serious: Yes (Hospitalization)
  Sender: FDA-Public Use
  Company Number: None

PATIENT
  Age: 49 Year
  Sex: Male
  Weight: 67 kg

DRUGS (5)
  1. G-CSF (FILGRASTIM, AMGEN) [Suspect]
     Active Substance: FILGRASTIM
     Dates: end: 20191226
  2. TAXOL [Suspect]
     Active Substance: PACLITAXEL
     Dates: end: 20191210
  3. NEULASTA [Suspect]
     Active Substance: PEGFILGRASTIM
     Dates: end: 20191214
  4. CISPLATIN. [Suspect]
     Active Substance: CISPLATIN
     Dates: end: 20191213
  5. IFOSFAMIDE. [Suspect]
     Active Substance: IFOSFAMIDE
     Dates: end: 20191213

REACTIONS (6)
  - Dysphagia [None]
  - Oesophagitis [None]
  - Platelet count decreased [None]
  - Aplasia [None]
  - Blood creatinine increased [None]
  - Haemoglobin decreased [None]

NARRATIVE: CASE EVENT DATE: 20191217
